FAERS Safety Report 8365840-5 (Version None)
Quarter: 2012Q2

REPORT INFORMATION
  Report Type: 
  Country: None (occurrence: None)
  Receive Date: 20120517
  Receipt Date: 20120507
  Transmission Date: 20120825
  Serious: Yes (Hospitalization)
  Sender: FDA-Public Use
  Company Number: NL-AMGEN-NLDSP2012029249

PATIENT
  Age: 66 Year
  Sex: Male

DRUGS (9)
  1. SIMVASTATIN [Concomitant]
     Dosage: UNK
  2. OMEPRAZOLE [Concomitant]
     Dosage: UNK
  3. FOLIC ACID [Concomitant]
     Dosage: UNK
  4. ALLOPURINOL [Concomitant]
     Dosage: UNK
  5. METHOTREXATE SODIUM [Concomitant]
     Dosage: UNK
  6. ENBREL [Suspect]
     Indication: PSORIATIC ARTHROPATHY
     Dosage: 50 MG, WEEKLY
     Dates: start: 20081201
  7. NAPROXEN [Concomitant]
     Dosage: UNK
  8. TAMSULOSIN HCL [Concomitant]
     Dosage: UNK
  9. ACENOCOUMAROL [Concomitant]
     Dosage: UNK

REACTIONS (1)
  - GOUT [None]
